FAERS Safety Report 4807245-7 (Version None)
Quarter: 2005Q4

REPORT INFORMATION
  Report Type: 
  Country: None (occurrence: None)
  Receive Date: 20051020
  Receipt Date: 20051020
  Transmission Date: 20060501
  Serious: Yes (Hospitalization, Other)
  Sender: FDA-Public Use
  Company Number: None

PATIENT
  Age: 48 Year
  Sex: Female
  Weight: 82.1011 kg

DRUGS (2)
  1. MEGACE [Suspect]
     Indication: HORMONE REPLACEMENT THERAPY
     Dosage: 40MG PILL TWICE DAILY PO
     Route: 048
  2. PROVERA [Suspect]
     Indication: HORMONE REPLACEMENT THERAPY
     Dosage: 1 10MG PILL TWICE DAILY PO
     Route: 048

REACTIONS (7)
  - DEPRESSED LEVEL OF CONSCIOUSNESS [None]
  - DYSPHORIA [None]
  - HALLUCINATION [None]
  - IRRITABILITY [None]
  - PARANOIA [None]
  - PSYCHOTIC DISORDER [None]
  - SPEECH DISORDER [None]
